FAERS Safety Report 9335587 (Version 1)
Quarter: 2013Q2

REPORT INFORMATION
  Report Type: Spontaneous
  Country: US (occurrence: US)
  Receive Date: 20130605
  Receipt Date: 20130605
  Transmission Date: 20140414
  Serious: Yes (Death, Other)
  Sender: FDA-Public Use
  Company Number: US-TEVA-409998USA

PATIENT
  Sex: Male

DRUGS (1)
  1. TREANDA [Suspect]

REACTIONS (2)
  - Death [Fatal]
  - Bone marrow failure [Unknown]
